FAERS Safety Report 6030342-8 (Version None)
Quarter: 2009Q1

REPORT INFORMATION
  Report Type: 
  Country: None (occurrence: None)
  Receive Date: 20090105
  Receipt Date: 20090105
  Transmission Date: 20090719
  Serious: No
  Sender: FDA-Public Use
  Company Number: None

PATIENT
  Age: 53 Year
  Sex: Female
  Weight: 81.6475 kg

DRUGS (2)
  1. BONIVA [Suspect]
     Indication: BLOOD CALCIUM DECREASED
     Dosage: 150 MONTHLY PO
     Route: 048
  2. BONIVA [Suspect]
     Indication: BONE DENSITY DECREASED
     Dosage: 150 MONTHLY PO
     Route: 048

REACTIONS (1)
  - BLOOD PRESSURE INCREASED [None]
